FAERS Safety Report 19885007 (Version 1)
Quarter: 2021Q3

REPORT INFORMATION
  Report Type: Other
  Country: ZA (occurrence: ZA)
  Receive Date: 20210927
  Receipt Date: 20210927
  Transmission Date: 20211014
  Serious: Yes (Life-Threatening, Other)
  Sender: FDA-Public Use
  Company Number: ZA-ROCHE-2919388

PATIENT
  Sex: Female

DRUGS (2)
  1. MABTHERA [Suspect]
     Active Substance: RITUXIMAB
     Indication: SYSTEMIC LUPUS ERYTHEMATOSUS
  2. MABTHERA [Suspect]
     Active Substance: RITUXIMAB
     Indication: RHEUMATOID ARTHRITIS
     Dosage: START DATE 22/SEP/2021 AND END DATE 22/SEP/2021
     Route: 041

REACTIONS (8)
  - Anaphylactic reaction [Unknown]
  - Oxygen saturation decreased [Unknown]
  - Off label use [Unknown]
  - Dyspnoea [Unknown]
  - Angioedema [Unknown]
  - Cough [Unknown]
  - Tachycardia [Unknown]
  - Hypotension [Unknown]
